FAERS Safety Report 9604387 (Version 1)
Quarter: 2013Q4

REPORT INFORMATION
  Report Type: Spontaneous
  Country: US (occurrence: US)
  Receive Date: 20131008
  Receipt Date: 20131008
  Transmission Date: 20140711
  Serious: No
  Sender: FDA-Public Use
  Company Number: US-GLAXOSMITHKLINE-A1035156A

PATIENT
  Sex: Female

DRUGS (3)
  1. POTIGA [Suspect]
     Dosage: 850MG PER DAY
     Route: 048
     Dates: start: 201207
  2. LAMOTRIGINE [Concomitant]
  3. FELBAMATE [Concomitant]

REACTIONS (1)
  - Lip discolouration [Not Recovered/Not Resolved]
